FAERS Safety Report 4381747-2 (Version None)
Quarter: 2004Q2

REPORT INFORMATION
  Report Type: 
  Country: None (occurrence: None)
  Receive Date: 20040603
  Receipt Date: 20030804
  Transmission Date: 20050107
  Serious: Yes (Death)
  Sender: FDA-Public Use
  Company Number: 200317035US

PATIENT
  Age: 68 Year
  Sex: Female
  Weight: 154.5 kg

DRUGS (3)
  1. LOVENOX [Suspect]
     Indication: BLOOD CREATINE PHOSPHOKINASE INCREASED
     Dosage: 150 MG Q12H SC
     Route: 058
     Dates: start: 20030601, end: 20030606
  2. LOVENOX [Suspect]
     Indication: CORONARY ARTERY DISEASE
     Dosage: 150 MG Q12H SC
     Route: 058
     Dates: start: 20030601, end: 20030606
  3. HEPARIN [Concomitant]

REACTIONS (3)
  - ABDOMINAL PAIN [None]
  - HYPOTENSION [None]
  - RETROPERITONEAL HAEMATOMA [None]
